FAERS Safety Report 4556661-X (Version None)
Quarter: 2005Q1

REPORT INFORMATION
  Report Type: 
  Country: None (occurrence: None)
  Receive Date: 20041227
  Receipt Date: 20031125
  Transmission Date: 20050727
  Serious: Yes (Other)
  Sender: FDA-Public Use
  Company Number: NSADSS2003006317

PATIENT
  Age: 48 Year
  Sex: Male

DRUGS (3)
  1. REOPRO [Suspect]
     Indication: CORONARY ANGIOPLASTY
     Dosage: 11.8 ML, 1 IN 1 AS NECESSARY, INTRAVENOUS DRIP
     Route: 041
     Dates: start: 20030122
  2. CLOPIDOGREL BISULFATE [Suspect]
     Indication: DRUG USE FOR UNKNOWN INDICATION
     Dosage: 21.00 CC/HR DRIP
     Dates: start: 20030122
  3. ASPIRIN [Concomitant]

REACTIONS (2)
  - CATHETER SITE HAEMORRHAGE [None]
  - THROMBOCYTOPENIA [None]
